FAERS Safety Report 13815505 (Version 1)
Quarter: 2017Q3

REPORT INFORMATION
  Report Type: Spontaneous
  Country: PE (occurrence: PE)
  Receive Date: 20170731
  Receipt Date: 20170731
  Transmission Date: 20171127
  Serious: Yes (Other)
  Sender: FDA-Public Use
  Company Number: PE-GLAXOSMITHKLINE-PE2017GSK116294

PATIENT
  Age: 75 Year
  Sex: Female

DRUGS (1)
  1. SERETIDE [Suspect]
     Active Substance: FLUTICASONE PROPIONATE\SALMETEROL XINAFOATE
     Indication: ASTHMA
     Dosage: 125 UNK, U
     Route: 055
     Dates: start: 2012

REACTIONS (4)
  - Brain neoplasm [Not Recovered/Not Resolved]
  - Immobile [Not Recovered/Not Resolved]
  - Pulmonary fibrosis [Unknown]
  - Brain tumour operation [Not Recovered/Not Resolved]

NARRATIVE: CASE EVENT DATE: 201608
